FAERS Safety Report 5345223-2 (Version None)
Quarter: 2007Q2

REPORT INFORMATION
  Report Type: 
  Country: None (occurrence: None)
  Receive Date: 20070605
  Receipt Date: 20070529
  Transmission Date: 20071010
  Serious: Yes (Hospitalization, Other)
  Sender: FDA-Public Use
  Company Number: PHNU2005DE03558

PATIENT
  Age: 25 Year
  Sex: Female

DRUGS (1)
  1. GLEEVEC [Suspect]
     Indication: CHRONIC MYELOID LEUKAEMIA
     Dosage: 400 MG, QD
     Route: 048
     Dates: start: 20000701, end: 20051011

REACTIONS (10)
  - AMNIOCENTESIS ABNORMAL [None]
  - AMNIORRHEXIS [None]
  - DRUG EXPOSURE DURING PREGNANCY [None]
  - EPISIOTOMY [None]
  - LOCAL ANAESTHESIA [None]
  - PLACENTAL DISORDER [None]
  - PREMATURE BABY [None]
  - PREMATURE LABOUR [None]
  - PREMATURE RUPTURE OF MEMBRANES [None]
  - ULTRASOUND FOETAL [None]
